FAERS Safety Report 8540569-9 (Version None)
Quarter: 2012Q3

REPORT INFORMATION
  Report Type: 
  Country: None (occurrence: None)
  Receive Date: 20120726
  Receipt Date: 20110921
  Transmission Date: 20120928
  Serious: No
  Sender: FDA-Public Use
  Company Number: US-ASTRAZENECA-2011SE46899

PATIENT
  Age: 41 Year
  Sex: Male
  Weight: 97.1 kg

DRUGS (3)
  1. LITHIUM CARBONATE [Concomitant]
     Indication: SCHIZOPHRENIA
  2. TRAZODONE HCL [Concomitant]
     Indication: SCHIZOPHRENIA
  3. SEROQUEL [Suspect]
     Route: 048

REACTIONS (10)
  - BACK DISORDER [None]
  - MENTAL DISORDER [None]
  - THINKING ABNORMAL [None]
  - SINUS DISORDER [None]
  - BACK PAIN [None]
  - HALLUCINATION, AUDITORY [None]
  - NERVOUSNESS [None]
  - DEPRESSION [None]
  - PSYCHOTIC DISORDER [None]
  - DRUG DOSE OMISSION [None]
